FAERS Safety Report 19156786 (Version 1)
Quarter: 2021Q2

REPORT INFORMATION
  Report Type: Spontaneous
  Country: US (occurrence: US)
  Receive Date: 20210419
  Receipt Date: 20210419
  Transmission Date: 20210717
  Serious: No
  Sender: FDA-Public Use
  Company Number: None

PATIENT
  Age: 43 Year
  Sex: Female
  Weight: 63 kg

DRUGS (2)
  1. BUPRENORPHINE?NALOXONE TAB 8?2MG [Suspect]
     Active Substance: BUPRENORPHINE HYDROCHLORIDE\NALOXONE HYDROCHLORIDE
     Indication: DRUG DEPENDENCE
     Route: 060
     Dates: start: 20200410, end: 20210408
  2. BUPRENORPHINE?NALOXONE TABS [Concomitant]
     Active Substance: BUPRENORPHINE\NALOXONE
     Dates: start: 20200410, end: 20210408

REACTIONS (4)
  - Headache [None]
  - Nausea [None]
  - Diarrhoea [None]
  - Vomiting [None]

NARRATIVE: CASE EVENT DATE: 20210408
